FAERS Safety Report 10021052 (Version 1)
Quarter: 2014Q1

REPORT INFORMATION
  Report Type: Spontaneous
  Country: JP (occurrence: JP)
  Receive Date: 20140319
  Receipt Date: 20140319
  Transmission Date: 20141002
  Serious: Yes (Other)
  Sender: FDA-Public Use
  Company Number: JP-ASTELLAS-2014JP002374

PATIENT
  Age: 28 Year
  Sex: Male

DRUGS (4)
  1. PROGRAF [Suspect]
     Indication: UNRELATED DONOR BONE MARROW TRANSPLANTATION THERAPY
     Route: 065
  2. PROGRAF [Suspect]
     Route: 065
  3. ENDOXAN                            /00021101/ [Concomitant]
     Indication: BONE MARROW CONDITIONING REGIMEN
     Route: 065
  4. DRUG FOR EXTERNAL USE [Concomitant]
     Indication: ACUTE GRAFT VERSUS HOST DISEASE
     Route: 065

REACTIONS (3)
  - Drug ineffective [Unknown]
  - Acute graft versus host disease [Recovering/Resolving]
  - Aplasia pure red cell [Recovering/Resolving]
